FAERS Safety Report 11258218 (Version 1)
Quarter: 2015Q3

REPORT INFORMATION
  Report Type: Report from Study
  Country: GB (occurrence: None)
  Receive Date: 20150708
  Receipt Date: 20150708
  Transmission Date: 20151125
  Serious: Yes (Death)
  Sender: FDA-Public Use
  Company Number: 2015FE02275

PATIENT
  Age: 9 Year
  Sex: Male

DRUGS (1)
  1. ZOMACTON [Suspect]
     Active Substance: SOMATROPIN
     Indication: GROWTH HORMONE DEFICIENCY
     Route: 058
     Dates: start: 200902

REACTIONS (1)
  - Death [None]

NARRATIVE: CASE EVENT DATE: 20150630
